FAERS Safety Report 19274260 (Version 1)
Quarter: 2021Q2

REPORT INFORMATION
  Report Type: Spontaneous
  Country: US (occurrence: US)
  Receive Date: 20210519
  Receipt Date: 20210519
  Transmission Date: 20210717
  Serious: Yes (Hospitalization)
  Sender: FDA-Public Use
  Company Number: None

PATIENT
  Age: 3 Year
  Sex: Male

DRUGS (11)
  1. PEDIA?LAX [Concomitant]
     Active Substance: SODIUM PHOSPHATE, DIBASIC, HEPTAHYDRATE\SODIUM PHOSPHATE, MONOBASIC
  2. SENNA [Concomitant]
     Active Substance: SENNA LEAF\SENNOSIDES\SENNOSIDES A AND B
  3. LEVETIRACETAM. [Concomitant]
     Active Substance: LEVETIRACETAM
  4. POLY?VI?SOL [Concomitant]
     Active Substance: VITAMINS
  5. ATROPINE. [Concomitant]
     Active Substance: ATROPINE
  6. ALBUTEROL. [Concomitant]
     Active Substance: ALBUTEROL
  7. FELBAMATE. [Concomitant]
     Active Substance: FELBAMATE
  8. VIGABATRIN. [Suspect]
     Active Substance: VIGABATRIN
     Indication: EPILEPSY
     Dosage: ?          OTHER ROUTE:G?TUBE?
     Dates: start: 20201116
  9. SODIUM CHLORIDE. [Concomitant]
     Active Substance: SODIUM CHLORIDE
  10. LEVOCARNITIN [Concomitant]
  11. BUDESONIDE. [Concomitant]
     Active Substance: BUDESONIDE

REACTIONS (3)
  - Tracheitis [None]
  - Seizure [None]
  - Pyrexia [None]
